FAERS Safety Report 13552083 (Version 1)
Quarter: 2017Q2

REPORT INFORMATION
  Report Type: Spontaneous
  Country: US (occurrence: US)
  Receive Date: 20170516
  Receipt Date: 20170516
  Transmission Date: 20170830
  Serious: Yes (Hospitalization, Other)
  Sender: FDA-Public Use
  Company Number: US-TEVA-768247USA

PATIENT
  Age: 75 Year
  Sex: Female

DRUGS (3)
  1. LETROZOLE. [Suspect]
     Active Substance: LETROZOLE
     Indication: BREAST CANCER
     Route: 065
  2. TAMOXIFEN [Suspect]
     Active Substance: TAMOXIFEN
     Indication: BREAST CANCER
     Route: 065
  3. RALOXIFENE HYDROCHLORIDE. [Suspect]
     Active Substance: RALOXIFENE HYDROCHLORIDE
     Indication: BREAST CANCER
     Route: 065

REACTIONS (1)
  - Aortic aneurysm [Unknown]
